FAERS Safety Report 8485628-4 (Version None)
Quarter: 2012Q3

REPORT INFORMATION
  Report Type: 
  Country: None (occurrence: None)
  Receive Date: 20120703
  Receipt Date: 20120628
  Transmission Date: 20120928
  Serious: Yes (Other)
  Sender: FDA-Public Use
  Company Number: US-PFIZER INC-2012156132

PATIENT
  Age: 48 Year
  Sex: Female

DRUGS (16)
  1. CEREFOLIN [Concomitant]
  2. ZEGERID [Concomitant]
     Dosage: UNK
  3. CO-Q-10 [Concomitant]
     Dosage: UNK
  4. SAVELLA [Suspect]
     Dosage: UNK
  5. ROPINIROLE [Concomitant]
     Dosage: UNK
  6. HYDROCHLOROTHIAZIDE [Concomitant]
     Dosage: UNK
  7. ALPHA LIPOIC ACID [Concomitant]
     Dosage: UNK
  8. METHOTREXATE [Concomitant]
     Dosage: UNK
  9. SAM-E [Concomitant]
     Dosage: UNK
  10. LYRICA [Suspect]
     Dosage: 100 MG, 2X/DAY
     Route: 048
  11. HYDROCODONE [Suspect]
     Dosage: UNK
  12. MAXALT [Concomitant]
     Dosage: UNK
  13. ZANAFLEX [Concomitant]
     Dosage: UNK
  14. FLECTOR [Concomitant]
     Dosage: UNK
  15. LISINOPRIL [Concomitant]
     Dosage: UNK
  16. LORTAB [Concomitant]
     Dosage: UNK

REACTIONS (10)
  - COGNITIVE DISORDER [None]
  - MEMORY IMPAIRMENT [None]
  - DEPRESSION [None]
  - FALL [None]
  - SYSTEMIC LUPUS ERYTHEMATOSUS [None]
  - FATIGUE [None]
  - PAIN [None]
  - GAIT DISTURBANCE [None]
  - FIBROMYALGIA [None]
  - MALAISE [None]
